FAERS Safety Report 4959055-8 (Version None)
Quarter: 2006Q1

REPORT INFORMATION
  Report Type: 
  Country: None (occurrence: None)
  Receive Date: 20060331
  Receipt Date: 20060210
  Transmission Date: 20060701
  Serious: Yes (Hospitalization, Other)
  Sender: FDA-Public Use
  Company Number: GBWYE389013FEB06

PATIENT
  Sex: Female

DRUGS (3)
  1. ENBREL [Suspect]
     Route: 058
     Dates: start: 20021201, end: 20050801
  2. ENBREL [Suspect]
     Route: 058
     Dates: start: 20050801
  3. DICLOFENAC [Concomitant]

REACTIONS (5)
  - CARBOHYDRATE ANTIGEN 125 INCREASED [None]
  - CONDITION AGGRAVATED [None]
  - CYST [None]
  - ENDOMETRIOSIS [None]
  - HAEMORRHAGE [None]
